FAERS Safety Report 10723541 (Version 2)
Quarter: 2015Q1

REPORT INFORMATION
  Report Type: Spontaneous
  Country: US (occurrence: US)
  Receive Date: 20150120
  Receipt Date: 20150220
  Transmission Date: 20150721
  Serious: No
  Sender: FDA-Public Use
  Company Number: US-009507513-1501USA004385

PATIENT
  Age: 66 Year
  Sex: Male

DRUGS (5)
  1. PEGINTRON [Suspect]
     Active Substance: PEGINTERFERON ALFA-2B
     Indication: HEPATITIS C
     Dosage: 150 MCG I ^ONE INJECTION ONCE WEEKLY^
     Route: 058
     Dates: start: 20141209
  2. VITAMINS (UNSPECIFIED) [Concomitant]
     Active Substance: VITAMINS
  3. RIBASPHERE [Suspect]
     Active Substance: RIBAVIRIN
     Dosage: TWO 600 MG TABLET A DAY
  4. SOVALDI [Concomitant]
     Active Substance: SOFOSBUVIR
  5. MUCINEX [Concomitant]
     Active Substance: GUAIFENESIN

REACTIONS (17)
  - Influenza like illness [Not Recovered/Not Resolved]
  - Burning sensation [Not Recovered/Not Resolved]
  - Bronchial disorder [Not Recovered/Not Resolved]
  - Chills [Unknown]
  - Red blood cell count decreased [Unknown]
  - Feeling abnormal [Unknown]
  - Depressed mood [Unknown]
  - Product quality issue [Unknown]
  - Rash [Not Recovered/Not Resolved]
  - Pyrexia [Unknown]
  - Fatigue [Unknown]
  - Dysphonia [Unknown]
  - Dysgeusia [Unknown]
  - Pain in extremity [Unknown]
  - Drug dose omission [Unknown]
  - Mucous membrane disorder [Unknown]
  - Injection site vesicles [Unknown]

NARRATIVE: CASE EVENT DATE: 20150203
